FAERS Safety Report 11096088 (Version 1)
Quarter: 2015Q2

REPORT INFORMATION
  Report Type: Spontaneous
  Country: US (occurrence: None)
  Receive Date: 20150506
  Receipt Date: 20150506
  Transmission Date: 20150821
  Serious: Yes (Disabling, Other)
  Sender: FDA-Public Use
  Company Number: None

PATIENT
  Age: 51 Year
  Sex: Female
  Weight: 107.96 kg

DRUGS (3)
  1. LEVAQUIN [Suspect]
     Active Substance: LEVOFLOXACIN
     Indication: PNEUMONIA BACTERIAL
     Route: 048
     Dates: start: 20150326, end: 20150401
  2. SYNTHROID [Concomitant]
     Active Substance: LEVOTHYROXINE SODIUM
  3. SHAKLEE VITA-LEA MULTIVITAMIN [Concomitant]

REACTIONS (7)
  - Myalgia [None]
  - Movement disorder [None]
  - Pain [None]
  - Bone pain [None]
  - Quality of life decreased [None]
  - Impaired work ability [None]
  - Arthralgia [None]

NARRATIVE: CASE EVENT DATE: 20150324
